FAERS Safety Report 4710570-1 (Version None)
Quarter: 2005Q3

REPORT INFORMATION
  Report Type: 
  Country: None (occurrence: None)
  Receive Date: 20050706
  Receipt Date: 20050706
  Transmission Date: 20060218
  Serious: Yes (Hospitalization)
  Sender: FDA-Public Use
  Company Number: None

PATIENT
  Age: 47 Year
  Sex: Male

DRUGS (13)
  1. CETUXIMAB [Suspect]
     Indication: NEOPLASM MALIGNANT
     Dosage: 250MG/M2 IV WEEKLY
     Route: 042
     Dates: start: 20050329, end: 20050623
  2. PACLITAXEL [Suspect]
     Indication: NEOPLASM MALIGNANT
     Dosage: 40 MG/M2 IV WEEKLY
     Route: 042
     Dates: start: 20050503, end: 20050623
  3. CARBOPLATIN [Suspect]
     Indication: NEOPLASM MALIGNANT
     Dosage: 1.0 AUC IV WEEKLY
     Route: 042
     Dates: start: 20050503, end: 20050623
  4. RADIATION [Suspect]
     Indication: NEOPLASM MALIGNANT
     Dosage: 180 CGY PER DAY
     Dates: start: 20050503, end: 20050620
  5. CEFTRIAXONE [Concomitant]
  6. DURAGESIC-100 [Concomitant]
  7. COMBIVENT [Concomitant]
  8. PROCRIT [Concomitant]
  9. SALAGEN [Concomitant]
  10. SILVADONE CREAM [Concomitant]
  11. MAGIC MOUTHWASH [Concomitant]
  12. FERROUS SULFATE TAB [Concomitant]
  13. MAGNESIUM SULFATE [Concomitant]

REACTIONS (8)
  - ASTHENIA [None]
  - CATHETER RELATED INFECTION [None]
  - CHEST X-RAY ABNORMAL [None]
  - LETHARGY [None]
  - PYREXIA [None]
  - RASH [None]
  - SKIN INFECTION [None]
  - SOFT TISSUE INFECTION [None]
